FAERS Safety Report 24342149 (Version 2)
Quarter: 2024Q4

REPORT INFORMATION
  Report Type: Spontaneous
  Country: US (occurrence: US)
  Receive Date: 20240920
  Receipt Date: 20241025
  Transmission Date: 20250114
  Serious: Yes (Other)
  Sender: AMNEAL
  Company Number: US-AMNEAL PHARMACEUTICALS-2024-AMRX-03418

PATIENT
  Age: 64 Year
  Sex: Female

DRUGS (6)
  1. BACLOFEN [Suspect]
     Active Substance: BACLOFEN
     Indication: Pain
     Dosage: 250 MCG/ML, DOSE IS UNKNOWN
     Route: 037
  2. BACLOFEN [Suspect]
     Active Substance: BACLOFEN
     Dosage: 166.38 MICROGRAM (500 MCG/ML), QD
     Route: 037
  3. BACLOFEN [Suspect]
     Active Substance: BACLOFEN
     Dosage: 6.25 MICROGRAM, 6X/DAY (BOLUS DOSE, MAXIMUM DAILY DOSE: 203.18 MCG))
     Route: 037
  4. DILAUDID [Suspect]
     Active Substance: HYDROMORPHONE HYDROCHLORIDE
     Indication: Pain
     Dosage: 500 MCG/ML, DOSE IS UNKNOWN.
     Route: 037
  5. DILAUDID [Suspect]
     Active Substance: HYDROMORPHONE HYDROCHLORIDE
     Dosage: 3.993 MILLIGRAM (12MG/ML), QD
  6. DILAUDID [Suspect]
     Active Substance: HYDROMORPHONE HYDROCHLORIDE
     Dosage: 0.15 MILLIGRAM, 6X/DAY (BOLUS DOSE, MAXIMUM DAILY DOSE: 4.876 MG (+22.1%))

REACTIONS (5)
  - Implant site extravasation [Recovered/Resolved]
  - Loss of therapeutic response [Unknown]
  - Device issue [Unknown]
  - Device alarm issue [Unknown]
  - Device leakage [Unknown]

NARRATIVE: CASE EVENT DATE: 20240910
